FAERS Safety Report 6738834-0 (Version None)
Quarter: 2010Q2

REPORT INFORMATION
  Report Type: 
  Country: None (occurrence: None)
  Receive Date: 20100520
  Receipt Date: 20100506
  Transmission Date: 20101027
  Serious: Yes (Death, Other)
  Sender: FDA-Public Use
  Company Number: POMP-1000213

PATIENT
  Age: 19 Month
  Sex: Female

DRUGS (1)
  1. MYOZYME [Suspect]
     Indication: GLYCOGEN STORAGE DISEASE TYPE II

REACTIONS (3)
  - DISEASE COMPLICATION [None]
  - DISEASE PROGRESSION [None]
  - RESPIRATORY DISORDER [None]
